FAERS Safety Report 4924974-5 (Version None)
Quarter: 2006Q1

REPORT INFORMATION
  Report Type: 
  Country: None (occurrence: None)
  Receive Date: 20060127
  Receipt Date: 20051205
  Transmission Date: 20060701
  Serious: Yes (Other)
  Sender: FDA-Public Use
  Company Number: 2005166310

PATIENT
  Age: 78 Year
  Sex: Female
  Weight: 60.782 kg

DRUGS (11)
  1. LYRICA [Suspect]
     Indication: HERPES ZOSTER
     Dosage: 150 MG (75 MG, 2 IN 1 D), ORAL
     Route: 048
     Dates: start: 20051114
  2. ALL OTHER THERAPEUTIC PRODUCTS [Concomitant]
  3. TYLENOL PM (DIPHENHYDRAMINE, PARACETAMOL) [Concomitant]
  4. PROPRANOLOL [Concomitant]
  5. LANOXIN [Concomitant]
  6. BENAZEPRIL HYDROCHLORIDE [Concomitant]
  7. CALCIUM GLUCONATE [Concomitant]
  8. MULTIVITAMIN [Concomitant]
  9. LORAZEPAM [Concomitant]
  10. FUROSEMIDE [Concomitant]
  11. POTASSIUM [Concomitant]

REACTIONS (3)
  - BLOOD PRESSURE INCREASED [None]
  - INSOMNIA [None]
  - WEIGHT INCREASED [None]
